FAERS Safety Report 12456582 (Version 2)
Quarter: 2016Q2

REPORT INFORMATION
  Report Type: Spontaneous
  Country: LT (occurrence: LT)
  Receive Date: 20160610
  Receipt Date: 20160615
  Transmission Date: 20160815
  Serious: Yes (Hospitalization)
  Sender: FDA-Public Use
  Company Number: LT-ALLERGAN-1659423US

PATIENT
  Sex: Female

DRUGS (1)
  1. GANFORT [Suspect]
     Active Substance: BIMATOPROST\TIMOLOL
     Indication: INTRAOCULAR PRESSURE INCREASED
     Dosage: 1 GTT, QD
     Route: 061

REACTIONS (1)
  - Eye allergy [Recovered/Resolved]
